FAERS Safety Report 10895783 (Version 2)
Quarter: 2015Q2

REPORT INFORMATION
  Report Type: Spontaneous
  Country: CO (occurrence: CO)
  Receive Date: 20150307
  Receipt Date: 20150409
  Transmission Date: 20150821
  Serious: Yes (Hospitalization, Other)
  Sender: FDA-Public Use
  Company Number: CO-AMGEN-COLSP2014065612

PATIENT
  Age: 44 Year
  Sex: Female

DRUGS (7)
  1. SULFASALAZINE. [Concomitant]
     Active Substance: SULFASALAZINE
     Dosage: 500 MG, 2X/DAY
  2. ENBREL [Suspect]
     Active Substance: ETANERCEPT
     Indication: RHEUMATOID ARTHRITIS
     Dosage: 50 MG, WEEKLY
     Route: 058
     Dates: start: 20121128, end: 201411
  3. ARAVA [Concomitant]
     Active Substance: LEFLUNOMIDE
     Dosage: 20 MG, 1X/DAY
  4. NAPROXEN. [Concomitant]
     Active Substance: NAPROXEN
     Dosage: 250 MG, 1X/DAY
  5. COLCHICINE. [Concomitant]
     Active Substance: COLCHICINE
     Dosage: 0.5 MG, 1X/DAY
  6. PREDNISOLON                        /00016201/ [Concomitant]
     Active Substance: PREDNISOLONE
     Dosage: 5 MG, AS NEEDED
  7. ENBREL [Suspect]
     Active Substance: ETANERCEPT
     Dosage: UNK
     Route: 065
     Dates: start: 2014

REACTIONS (22)
  - Conjunctivitis [Recovering/Resolving]
  - Rash [Not Recovered/Not Resolved]
  - Discomfort [Unknown]
  - Chills [Not Recovered/Not Resolved]
  - Hypersensitivity [Not Recovered/Not Resolved]
  - Influenza [Unknown]
  - Erythema [Not Recovered/Not Resolved]
  - Urinary tract infection [Unknown]
  - Injection site haematoma [Recovered/Resolved]
  - Headache [Unknown]
  - Urine odour abnormal [Not Recovered/Not Resolved]
  - Gastrointestinal haemorrhage [Unknown]
  - Injection site inflammation [Recovered/Resolved]
  - Pruritus [Not Recovered/Not Resolved]
  - Injection site erythema [Recovered/Resolved]
  - Chromaturia [Not Recovered/Not Resolved]
  - Infection [Unknown]
  - Dizziness [Not Recovered/Not Resolved]
  - Photosensitivity reaction [Not Recovered/Not Resolved]
  - Acute sinusitis [Not Recovered/Not Resolved]
  - Pyrexia [Not Recovered/Not Resolved]
  - Fatigue [Unknown]

NARRATIVE: CASE EVENT DATE: 2012
